FAERS Safety Report 10256327 (Version 1)
Quarter: 2014Q2

REPORT INFORMATION
  Report Type: Spontaneous
  Country: GB (occurrence: GB)
  Receive Date: 20140624
  Receipt Date: 20140624
  Transmission Date: 20141212
  Serious: Yes (Other)
  Sender: FDA-Public Use
  Company Number: GB-TEVA-489622ISR

PATIENT
  Age: 34 Year
  Sex: Female
  Weight: 69 kg

DRUGS (3)
  1. TOPIRAMATE [Suspect]
     Indication: MIGRAINE
     Dosage: 50 MILLIGRAM DAILY;
     Route: 048
     Dates: start: 20140106, end: 20140112
  2. IMIGRAN [Concomitant]
     Indication: MIGRAINE
     Route: 048
  3. OMEPRAZOLE [Concomitant]
     Indication: DYSPEPSIA
     Dosage: 10 MILLIGRAM DAILY;
     Route: 048

REACTIONS (1)
  - Blindness transient [Recovered/Resolved]
